FAERS Safety Report 10163602 (Version 1)
Quarter: 2014Q2

REPORT INFORMATION
  Report Type: Spontaneous
  Country: NL (occurrence: NL)
  Receive Date: 20140509
  Receipt Date: 20140509
  Transmission Date: 20141212
  Serious: Yes (Congenital Anomaly)
  Sender: FDA-Public Use
  Company Number: PHHY2014NL054693

PATIENT
  Sex: Female

DRUGS (2)
  1. CLOMIPRAMINE [Suspect]
     Dosage: 1 DF (10MG) A DAY
     Route: 048
  2. FOLATE [Concomitant]
     Dosage: UNK UKN, UNK

REACTIONS (1)
  - Abortion induced [Not Recovered/Not Resolved]
